FAERS Safety Report 7680470 (Version 6)
Quarter: 2013Q4

REPORT INFORMATION
  Report Type: Spontaneous
  Country: US (occurrence: US)
  Receive Date: 20101123
  Receipt Date: 20131216
  Transmission Date: 20140711
  Serious: Yes (Hospitalization)
  Sender: FDA-Public Use
  Company Number: US-US-EMD SERONO, INC.-7020440

PATIENT
  Age: 49 Year
  Sex: Female
  Weight: 66 kg

DRUGS (4)
  1. REBIF [Suspect]
     Indication: MULTIPLE SCLEROSIS
     Route: 058
     Dates: start: 20091112
  2. REBIF [Suspect]
     Route: 058
  3. DILANTIN [Concomitant]
     Indication: GRAND MAL CONVULSION
     Dates: end: 201009
  4. DILANTIN [Concomitant]
     Dates: start: 201009

REACTIONS (8)
  - Convulsion [Unknown]
  - Multiple sclerosis [Unknown]
  - Muscular weakness [Unknown]
  - Sensation of heaviness [Recovering/Resolving]
  - Gait disturbance [Recovering/Resolving]
  - Muscle spasms [Recovered/Resolved]
  - Injection site erythema [Unknown]
  - Injection site pain [Unknown]
